FAERS Safety Report 5399024-X (Version None)
Quarter: 2007Q3

REPORT INFORMATION
  Report Type: 
  Country: None (occurrence: None)
  Receive Date: 20070723
  Receipt Date: 20070723
  Transmission Date: 20080115
  Serious: Yes (Life-Threatening, Hospitalization)
  Sender: FDA-Public Use
  Company Number: None

PATIENT
  Age: 31 Year
  Sex: Female

DRUGS (1)
  1. NUVARING [Suspect]

REACTIONS (3)
  - COAGULATION FACTOR MUTATION [None]
  - PULMONARY EMBOLISM [None]
  - SPLENIC INFARCTION [None]
